FAERS Safety Report 8010355-7 (Version None)
Quarter: 2011Q4

REPORT INFORMATION
  Report Type: 
  Country: None (occurrence: None)
  Receive Date: 20111228
  Receipt Date: 20111221
  Transmission Date: 20120403
  Serious: Yes (Hospitalization)
  Sender: FDA-Public Use
  Company Number: FR-JNJFOC-20111210615

PATIENT
  Sex: Female

DRUGS (3)
  1. MULTI-VITAMINS [Concomitant]
     Indication: PRODUCT USED FOR UNKNOWN INDICATION
     Route: 065
  2. ACETAMINOPHEN [Suspect]
     Indication: PYREXIA
     Route: 048
     Dates: start: 20111001, end: 20111001
  3. ACETAMINOPHEN AND TRAMADOL HCL [Suspect]
     Indication: PYREXIA
     Route: 048
     Dates: start: 20111001, end: 20111001

REACTIONS (1)
  - LIVER INJURY [None]
